FAERS Safety Report 23993633 (Version 1)
Quarter: 2024Q2

REPORT INFORMATION
  Report Type: Report from Study
  Country: IN (occurrence: IN)
  Receive Date: 20240620
  Receipt Date: 20240620
  Transmission Date: 20240716
  Serious: Yes (Hospitalization, Other)
  Sender: FDA-Public Use
  Company Number: IN-Accord-430756

PATIENT
  Age: 38 Year
  Sex: Female

DRUGS (1)
  1. METHOTREXATE [Suspect]
     Active Substance: METHOTREXATE
     Indication: Undifferentiated connective tissue disease
     Dosage: 20 MG/ WEEKX5 WEEKS

REACTIONS (5)
  - Pancytopenia [Recovered/Resolved]
  - Mucosal inflammation [Unknown]
  - Diarrhoea [Unknown]
  - Dyspnoea [Unknown]
  - Hypoalbuminaemia [Unknown]
